FAERS Safety Report 8811434 (Version 5)
Quarter: 2013Q1

REPORT INFORMATION
  Report Type: Spontaneous
  Country: US (occurrence: US)
  Receive Date: 20120927
  Receipt Date: 20130111
  Transmission Date: 20140127
  Serious: No
  Sender: FDA-Public Use
  Company Number: US-009507513-1209USA009235

PATIENT
  Age: 14 Year
  Sex: Female
  Weight: 56.69 kg

DRUGS (1)
  1. IMPLANON [Suspect]
     Indication: MENORRHAGIA
     Dosage: 1 DF, UNK
     Route: 059
     Dates: start: 20110923, end: 201209

REACTIONS (2)
  - Metrorrhagia [Not Recovered/Not Resolved]
  - Medical device complication [Unknown]
